FAERS Safety Report 5624093-9 (Version None)
Quarter: 2008Q1

REPORT INFORMATION
  Report Type: 
  Country: None (occurrence: None)
  Receive Date: 20080213
  Receipt Date: 20070718
  Transmission Date: 20080703
  Serious: No
  Sender: FDA-Public Use
  Company Number: US-KINGPHARMUSA00001-K200700909

PATIENT

DRUGS (8)
  1. EPIPEN [Suspect]
     Indication: HYPERSENSITIVITY
     Dosage: .3 MG, SINGLE
     Dates: start: 20070717, end: 20070717
  2. EPIPEN [Suspect]
     Dosage: .3 MG, SINGLE
     Dates: start: 20070717, end: 20070717
  3. SYNTHROID [Concomitant]
     Indication: HYPOTHYROIDISM
     Dosage: .1 MG, QD
  4. LEXAPRO [Concomitant]
     Dosage: 10 MG, QD
  5. NEXIUM [Concomitant]
     Dosage: 40 MG, QD
  6. VICODIN ES [Concomitant]
     Indication: BACK PAIN
     Dosage: 1000 MG, BID, PRN
  7. SOMA [Concomitant]
     Dosage: 350 MG, QHS
  8. NAPROXEN [Concomitant]
     Dosage: 375 MG, BID, PRN

REACTIONS (3)
  - DRUG INEFFECTIVE [None]
  - EXPIRED DRUG ADMINISTERED [None]
  - INJECTION SITE BRUISING [None]
